FAERS Safety Report 18451580 (Version 1)
Quarter: 2020Q4

REPORT INFORMATION
  Report Type: Spontaneous
  Country: RO (occurrence: RO)
  Receive Date: 20201102
  Receipt Date: 20201102
  Transmission Date: 20210114
  Serious: Yes (Other)
  Sender: FDA-Public Use
  Company Number: NVSC2020RO287784

PATIENT
  Age: 49 Year
  Sex: Female

DRUGS (5)
  1. FRAXIPARINE [Concomitant]
     Active Substance: NADROPARIN CALCIUM
     Indication: PRODUCT USED FOR UNKNOWN INDICATION
     Dosage: UNK
     Route: 065
  2. LETROZOLE. [Suspect]
     Active Substance: LETROZOLE
     Indication: PRODUCT USED FOR UNKNOWN INDICATION
     Dosage: UNK
     Route: 065
     Dates: end: 20200601
  3. TAMOXIFEN [Suspect]
     Active Substance: TAMOXIFEN
     Indication: PRODUCT USED FOR UNKNOWN INDICATION
     Dosage: UNK
     Route: 065
     Dates: end: 20200601
  4. HERCEPTIN [Suspect]
     Active Substance: TRASTUZUMAB
     Indication: BREAST NEOPLASM
     Dosage: 600 MG(EVERY 21 DAYS)
     Route: 065
     Dates: start: 201912, end: 202006
  5. HERCEPTIN [Suspect]
     Active Substance: TRASTUZUMAB
     Dosage: 600 MG(ONGOING, EVERY 21 DAYS)
     Route: 065
     Dates: start: 20200904

REACTIONS (8)
  - Ill-defined disorder [Unknown]
  - Weight increased [Unknown]
  - Mucosal inflammation [Unknown]
  - Dyspnoea [Unknown]
  - Pulmonary embolism [Recovered/Resolved]
  - Gait inability [Unknown]
  - Therapeutic product effect increased [Unknown]
  - Fatigue [Unknown]
